FAERS Safety Report 15000135 (Version 1)
Quarter: 2018Q2

REPORT INFORMATION
  Report Type: Spontaneous
  Country: US (occurrence: US)
  Receive Date: 20180523
  Receipt Date: 20180523
  Transmission Date: 20180711
  Serious: Yes (Disabling)
  Sender: FDA-Public Use
  Company Number: None

PATIENT
  Age: 59 Year
  Sex: Female

DRUGS (2)
  1. METHYLPREDNISOLONE EPIDURAL STEROID INJECTION [Suspect]
     Active Substance: METHYLPREDNISOLONE
     Indication: INTERVERTEBRAL DISC PROTRUSION
     Dates: start: 20161216
  2. METHYLPREDNISOLONE EPIDURAL STEROID INJECTION [Suspect]
     Active Substance: METHYLPREDNISOLONE
     Indication: HYPOAESTHESIA
     Dates: start: 20161216

REACTIONS (10)
  - Bedridden [None]
  - Toxicity to various agents [None]
  - Vibratory sense increased [None]
  - Hypoaesthesia [None]
  - Drug effect incomplete [None]
  - Paraesthesia [None]
  - Arachnoiditis [None]
  - Fatigue [None]
  - Muscular weakness [None]
  - Impaired work ability [None]

NARRATIVE: CASE EVENT DATE: 20161216
